FAERS Safety Report 4466296-5 (Version None)
Quarter: 2004Q4

REPORT INFORMATION
  Report Type: 
  Country: None (occurrence: None)
  Receive Date: 20041001
  Receipt Date: 20040916
  Transmission Date: 20050328
  Serious: Yes (Hospitalization)
  Sender: FDA-Public Use
  Company Number: 2004SE05187

PATIENT
  Age: 87 Year
  Sex: Female

DRUGS (5)
  1. PROVISACOR [Suspect]
     Indication: HYPERCHOLESTEROLAEMIA
     Dosage: 10 MG DAILY PO
     Route: 048
     Dates: start: 20040707, end: 20040905
  2. PROVISACOR [Suspect]
     Indication: HYPERCHOLESTEROLAEMIA
     Dosage: 10 MG DAILY PO
     Route: 048
     Dates: start: 20040911, end: 20040914
  3. ACETYLSALICYLIC ACID [Concomitant]
  4. PANTOPRAZOLE [Concomitant]
  5. CITALOPRAM [Concomitant]

REACTIONS (4)
  - JAUNDICE [None]
  - NAUSEA [None]
  - OCULAR ICTERUS [None]
  - VOMITING [None]
